FAERS Safety Report 10573099 (Version 1)
Quarter: 2014Q4

REPORT INFORMATION
  Report Type: Spontaneous
  Country: TR (occurrence: None)
  Receive Date: 20141106
  Receipt Date: 20141106
  Transmission Date: 20150529
  Serious: Yes (Hospitalization)
  Sender: FDA-Public Use
  Company Number: IPC201410-000576

PATIENT
  Age: 42 Year
  Sex: Male

DRUGS (1)
  1. FUROSEMIDE (FUROSEMIDE) (FUROSEMIDE) [Suspect]
     Active Substance: FUROSEMIDE

REACTIONS (4)
  - Hypokalaemia [None]
  - Cardiac arrest [None]
  - Ventricular fibrillation [None]
  - Ventricular tachycardia [None]
